FAERS Safety Report 5576200-4 (Version None)
Quarter: 2007Q4

REPORT INFORMATION
  Report Type: 
  Country: None (occurrence: None)
  Receive Date: 20071228
  Receipt Date: 20071218
  Transmission Date: 20080405
  Serious: Yes (Other)
  Sender: FDA-Public Use
  Company Number: US-ROCHE-537876

PATIENT
  Age: 46 Year
  Sex: Male

DRUGS (2)
  1. PEG-INTERFERON A-2A (RO 25-8310) [Suspect]
     Route: 065
     Dates: start: 20070309, end: 20070606
  2. RIBAVIRIN [Suspect]
     Route: 065
     Dates: start: 20070309, end: 20070606

REACTIONS (4)
  - HEPATIC CIRRHOSIS [None]
  - IGA NEPHROPATHY [None]
  - PORTAL HYPERTENSION [None]
  - VARICES OESOPHAGEAL [None]
